FAERS Safety Report 15187492 (Version 1)
Quarter: 2018Q3

REPORT INFORMATION
  Report Type: Spontaneous
  Country: US (occurrence: US)
  Receive Date: 20180723
  Receipt Date: 20180723
  Transmission Date: 20181010
  Serious: No
  Sender: FDA-Public Use
  Company Number: US-SHIRE-US201825660

PATIENT
  Sex: Male
  Weight: 155 kg

DRUGS (1)
  1. ADDERALL XR [Suspect]
     Active Substance: AMPHETAMINE ASPARTATE\AMPHETAMINE SULFATE\DEXTROAMPHETAMINE SACCHARATE\DEXTROAMPHETAMINE SULFATE
     Indication: ATTENTION DEFICIT/HYPERACTIVITY DISORDER
     Dosage: UNK
     Route: 065
     Dates: start: 2012, end: 2017

REACTIONS (7)
  - Impulsive behaviour [Unknown]
  - Agitation [Unknown]
  - Anxiety [Unknown]
  - Feeling abnormal [Unknown]
  - Therapeutic response shortened [Unknown]
  - Decreased appetite [Unknown]
  - Anger [Unknown]

NARRATIVE: CASE EVENT DATE: 2013
